FAERS Safety Report 10968049 (Version 1)
Quarter: 2015Q1

REPORT INFORMATION
  Report Type: Spontaneous
  Country: US (occurrence: US)
  Receive Date: 20150330
  Receipt Date: 20150330
  Transmission Date: 20150721
  Serious: Yes (Hospitalization)
  Sender: FDA-Public Use
  Company Number: US-EMD SERONO-8017999

PATIENT
  Sex: Female

DRUGS (1)
  1. REBIF [Suspect]
     Active Substance: INTERFERON BETA-1A
     Indication: PRODUCT USED FOR UNKNOWN INDICATION
     Dates: start: 201208, end: 20150221

REACTIONS (5)
  - Nervousness [Unknown]
  - Kidney infection [Recovering/Resolving]
  - Intestinal haemorrhage [Recovered/Resolved]
  - Respiratory tract infection [Unknown]
  - Depression [Unknown]
